FAERS Safety Report 6206720-0 (Version None)
Quarter: 2009Q2

REPORT INFORMATION
  Report Type: 
  Country: None (occurrence: None)
  Receive Date: 20090528
  Receipt Date: 20090526
  Transmission Date: 20091009
  Serious: Yes (Disabling)
  Sender: FDA-Public Use
  Company Number: DE-EISAI INC.-E2090-00739-CLI-DE

PATIENT
  Sex: Male

DRUGS (3)
  1. ZONISAMIDE [Suspect]
     Indication: EPILEPSY
     Dosage: UNKNOWN
     Route: 048
     Dates: start: 20090404, end: 20090430
  2. LAMOTRIGINE [Concomitant]
     Route: 048
     Dates: start: 20081001
  3. PROSTAGUTT [Concomitant]
     Route: 048

REACTIONS (1)
  - PERSONALITY CHANGE [None]
